FAERS Safety Report 9905641 (Version 1)
Quarter: 2013Q2

REPORT INFORMATION
  Report Type: Spontaneous
  Country: US (occurrence: None)
  Receive Date: 20130627
  Receipt Date: 20130627
  Transmission Date: 20140414
  Serious: No
  Sender: FDA-Public Use
  Company Number: 1000044559

PATIENT
  Age: 73 Year
  Sex: Male

DRUGS (3)
  1. LINZESS (LINACLOTIDE) (290 MICROGRAM, CAPSULES) [Suspect]
     Indication: GASTROINTESTINAL INFECTION
     Route: 048
     Dates: start: 20130418
  2. DILANTIN (PHENYTOIN) (PHENYTOIN) [Concomitant]
  3. LIPITOR (ATORVASTATIN CALCIUM) (ATORVASTATIN CALCIUM) [Concomitant]

REACTIONS (2)
  - Diarrhoea [None]
  - Off label use [None]
